FAERS Safety Report 8314638-2 (Version None)
Quarter: 2012Q2

REPORT INFORMATION
  Report Type: 
  Country: None (occurrence: None)
  Receive Date: 20120426
  Receipt Date: 20120418
  Transmission Date: 20120825
  Serious: Yes (Hospitalization, Other)
  Sender: FDA-Public Use
  Company Number: US-BAYER-2011-088325

PATIENT
  Age: 35 Year
  Sex: Female
  Weight: 65.76 kg

DRUGS (21)
  1. YASMIN [Suspect]
     Dosage: UNK
     Dates: start: 20080419, end: 20080707
  2. AZMACORT [Concomitant]
     Indication: DYSPNOEA
     Dosage: DAILY
     Dates: start: 20081003, end: 20081016
  3. STEROIDS [Concomitant]
     Dosage: UNK
     Dates: start: 20081013, end: 20081023
  4. YAZ [Suspect]
     Indication: CONTRACEPTION
     Dosage: UNK
     Dates: start: 20080101, end: 20080401
  5. ADVAIR DISKUS 100/50 [Concomitant]
     Indication: ASTHMA
     Dosage: 250/50 2 [TIMES] DAILY
  6. ZITHROMAX [Concomitant]
     Dosage: UNK
     Dates: start: 20081023
  7. PREDNISONE TAB [Concomitant]
     Dosage: 10 MG, UNK
     Dates: start: 20081023
  8. YASMIN [Suspect]
     Indication: CONTRACEPTION
     Dosage: UNK
     Dates: start: 20040918, end: 20080101
  9. IBUPROFEN [Concomitant]
  10. PROVENTIL [Concomitant]
     Dosage: UNK UNK, PRN
     Dates: start: 20080924, end: 20081001
  11. AMOXICILLIN [Concomitant]
     Indication: DYSPNOEA
     Dosage: DAILY
     Dates: start: 20081003, end: 20081012
  12. SINGULAIR [Concomitant]
     Indication: ASTHMA
     Dosage: DAILY
     Dates: start: 20081003, end: 20081023
  13. ALBUTEROL [Concomitant]
     Dosage: 1 - 2 [TIMES] DAILY
     Dates: start: 20081023
  14. ASPIRIN [Concomitant]
     Dosage: EVERY 5 HOURS
  15. NASONEX [Concomitant]
     Indication: HYPERSENSITIVITY
     Dosage: UNK
     Dates: start: 20081003, end: 20081009
  16. CHOLESTYRAMINE [Concomitant]
     Indication: IRRITABLE BOWEL SYNDROME
     Dosage: UNK
     Dates: start: 20081003, end: 20081023
  17. DROSPIRENONE AND ETHINYL ESTRADIOL [Suspect]
     Indication: CONTRACEPTION
     Dosage: UNK
     Dates: start: 20080707, end: 20081023
  18. PROTONIX [Concomitant]
     Indication: GASTROOESOPHAGEAL REFLUX DISEASE
     Dosage: 40 MG DAILY
     Dates: start: 20081003, end: 20081023
  19. AUGMENTIN '125' [Concomitant]
  20. AZITHROMYCIN [Concomitant]
     Indication: COUGH
     Dosage: 250 MG, DAILY
     Dates: start: 20081003, end: 20081018
  21. CHOLESTERINUM [Concomitant]

REACTIONS (9)
  - ANXIETY [None]
  - PULMONARY EMBOLISM [None]
  - DEEP VEIN THROMBOSIS [None]
  - PAIN IN EXTREMITY [None]
  - OEDEMA PERIPHERAL [None]
  - MUSCLE SPASMS [None]
  - EMOTIONAL DISTRESS [None]
  - GENERAL PHYSICAL HEALTH DETERIORATION [None]
  - LIMB DISCOMFORT [None]
